FAERS Safety Report 6428277-1 (Version None)
Quarter: 2009Q4

REPORT INFORMATION
  Report Type: 
  Country: None (occurrence: None)
  Receive Date: 20091104
  Receipt Date: 20091104
  Transmission Date: 20100525
  Serious: Yes (Hospitalization)
  Sender: FDA-Public Use
  Company Number: None

PATIENT
  Age: 61 Year
  Sex: Male

DRUGS (1)
  1. NIACIN [Suspect]
     Indication: HYPERLIPIDAEMIA
     Dosage: 500 MG EVERY DAY PO
     Route: 048
     Dates: start: 20081210, end: 20081211

REACTIONS (4)
  - ANAPHYLACTIC REACTION [None]
  - COUGH [None]
  - OROPHARYNGEAL PAIN [None]
  - WHEEZING [None]
